FAERS Safety Report 11256368 (Version 2)
Quarter: 2015Q3

REPORT INFORMATION
  Report Type: Spontaneous
  Country: PR (occurrence: PR)
  Receive Date: 20150709
  Receipt Date: 20150720
  Transmission Date: 20151125
  Serious: Yes (Hospitalization)
  Sender: FDA-Public Use
  Company Number: PR-JNJFOC-20150705580

PATIENT
  Age: 56 Year
  Sex: Female
  Weight: 70.31 kg

DRUGS (3)
  1. EVICEL [Suspect]
     Active Substance: FIBRINOGEN HUMAN\THROMBIN HUMAN
     Indication: HAEMOSTASIS
     Route: 061
     Dates: start: 20150616, end: 20150616
  2. LOCAL HAEMOSTATICS [Concomitant]
     Active Substance: UNSPECIFIED INGREDIENT
     Indication: HAEMOSTASIS
     Dates: start: 20150616, end: 20150616
  3. LOVENOX [Concomitant]
     Active Substance: ENOXAPARIN SODIUM
     Route: 058

REACTIONS (4)
  - Drug ineffective [Unknown]
  - Abscess [Unknown]
  - Post procedural haemorrhage [Unknown]
  - Haematoma infection [Unknown]

NARRATIVE: CASE EVENT DATE: 20150616
